FAERS Safety Report 21186146 (Version 1)
Quarter: 2022Q3

REPORT INFORMATION
  Report Type: Report from Study
  Country: US (occurrence: US)
  Receive Date: 20220808
  Receipt Date: 20220808
  Transmission Date: 20221027
  Serious: Yes (Other)
  Sender: FDA-Public Use
  Company Number: US-BRISTOL-MYERS SQUIBB COMPANY-2022-082692

PATIENT
  Age: 66 Year
  Sex: Female
  Weight: 59.4 kg

DRUGS (1)
  1. REVLIMID [Suspect]
     Active Substance: LENALIDOMIDE
     Indication: Plasma cell myeloma
     Dosage: 1 DAILY FOR 14 DAYS
     Route: 048
     Dates: start: 202207

REACTIONS (5)
  - Hypotension [Unknown]
  - Musculoskeletal chest pain [Unknown]
  - Back pain [Unknown]
  - Spinal compression fracture [Unknown]
  - Off label use [Unknown]
